FAERS Safety Report 8865846 (Version 1)
Quarter: 2012Q4

REPORT INFORMATION
  Report Type: 
  Country: DE (occurrence: DE)
  Receive Date: 20121025
  Receipt Date: 20121025
  Transmission Date: 20130627
  Serious: Yes (Other)
  Sender: FDA-Public Use
  Company Number: PHHY2012DE094043

PATIENT
  Age: 81 Year
  Sex: Female

DRUGS (1)
  1. CEFTRIAXONE [Suspect]
     Indication: PYREXIA
     Route: 042

REACTIONS (3)
  - Autoimmune thrombocytopenia [Recovered/Resolved]
  - Petechiae [Recovering/Resolving]
  - Epistaxis [Recovering/Resolving]
